FAERS Safety Report 5027125-4 (Version None)
Quarter: 2006Q2

REPORT INFORMATION
  Report Type: 
  Country: None (occurrence: None)
  Receive Date: 20060609
  Receipt Date: 20060531
  Transmission Date: 20061013
  Serious: Yes (Hospitalization)
  Sender: FDA-Public Use
  Company Number: COT_0544_2006

PATIENT
  Age: 60 Year
  Sex: Male
  Weight: 109.3 kg

DRUGS (9)
  1. VENTAVIS [Suspect]
     Indication: PULMONARY HYPERTENSION
     Dosage: 5 MCG 6XD IH
     Route: 055
     Dates: start: 20050922
  2. VENTAVIS [Suspect]
     Indication: PULMONARY HYPERTENSION
     Dosage: 5 MCG 3X/DAY IH
     Route: 055
     Dates: end: 20060522
  3. COUMADIN [Suspect]
     Indication: PULMONARY HYPERTENSION
     Dosage: 8 MG QDAY PO
     Route: 048
     Dates: start: 20030901, end: 20060522
  4. TRACLEER [Concomitant]
  5. SILDENAFIL CITRATE [Concomitant]
  6. LASIX [Concomitant]
  7. MEVACOR [Concomitant]
  8. LIPITOR [Concomitant]
  9. BETIMOL [Concomitant]

REACTIONS (3)
  - EPISTAXIS [None]
  - GASTROINTESTINAL HAEMORRHAGE [None]
  - HAEMOGLOBIN DECREASED [None]
